FAERS Safety Report 24004506 (Version 2)
Quarter: 2024Q3

REPORT INFORMATION
  Report Type: Spontaneous
  Country: US (occurrence: US)
  Receive Date: 20240624
  Receipt Date: 20240809
  Transmission Date: 20241017
  Serious: Yes (Other)
  Sender: UCB
  Company Number: US-UCBSA-2024030226

PATIENT
  Sex: Male
  Weight: 79.365 kg

DRUGS (23)
  1. KEPPRA [Suspect]
     Active Substance: LEVETIRACETAM
     Indication: Seizure
     Dosage: 250 MILLIGRAM, ONCE DAILY (QD)
     Dates: start: 20220811
  2. VIMPAT [Suspect]
     Active Substance: LACOSAMIDE
     Indication: Seizure
     Dosage: 50 MILLIGRAM
     Dates: start: 20220815
  3. VIMPAT [Suspect]
     Active Substance: LACOSAMIDE
     Dosage: 100 MILLIGRAM
     Dates: start: 20220902
  4. VIMPAT [Suspect]
     Active Substance: LACOSAMIDE
     Dosage: 50 MILLIGRAM
     Dates: start: 20221007
  5. VIMPAT [Suspect]
     Active Substance: LACOSAMIDE
     Dosage: 100 MILLIGRAM
     Dates: start: 20221108, end: 20230622
  6. METHYLPHENIDATE HYDROCHLORIDE [Concomitant]
     Active Substance: METHYLPHENIDATE HYDROCHLORIDE
     Indication: Attention deficit hyperactivity disorder
     Dosage: 20 MILLIGRAM, 3X/DAY (TID)
     Route: 048
     Dates: start: 20120203
  7. FLUTICASONE PROPIONATE [Concomitant]
     Active Substance: FLUTICASONE PROPIONATE
     Indication: Rhinitis allergic
     Dosage: 50 MCG/ACT NASAL SUSPENSION; SHAKE LIQUID AND USE 2 SPRAYS [N EACH NOSTRIL EVERY DAY;
     Dates: start: 20190201
  8. BUSPIRONE HYDROCHLORIDE [Concomitant]
     Active Substance: BUSPIRONE HYDROCHLORIDE
     Indication: Anxiety
     Dosage: 2 DOSAGE FORM, 2X/DAY (BID)
     Dates: start: 20120203
  9. CITALOPRAM HYDROBROMIDE [Concomitant]
     Active Substance: CITALOPRAM HYDROBROMIDE
     Indication: Anxiety
     Dosage: 1 DOSAGE FORM
     Route: 048
     Dates: start: 20120104
  10. ROSUVASTATIN CALCIUM [Concomitant]
     Active Substance: ROSUVASTATIN CALCIUM
     Indication: Coronary artery disease
     Dosage: 1 DOSAGE FORM BED TIME
     Route: 048
     Dates: start: 20210712
  11. HYDROCHLOROTHIAZIDE\LISINOPRIL [Concomitant]
     Active Substance: HYDROCHLOROTHIAZIDE\LISINOPRIL
     Indication: Essential hypertension
     Dosage: 1 DOSAGE FORM
     Route: 048
     Dates: start: 20190924
  12. METOPROLOL SUCCINATE [Concomitant]
     Active Substance: METOPROLOL SUCCINATE
     Indication: Essential hypertension
     Dosage: 1 DOSAGE FORM
     Route: 048
     Dates: start: 20180315
  13. EZETIMIBE [Concomitant]
     Active Substance: EZETIMIBE
     Indication: Dyslipidaemia
     Dosage: 1 DOSAGE FORM EVERY DAY
     Route: 048
     Dates: start: 20230914
  14. REPATHA [Concomitant]
     Active Substance: EVOLOCUMAB
     Indication: Dyslipidaemia
     Dosage: 140 MILLIGRAM, EV 2 WEEKS(QOW)
     Route: 058
     Dates: start: 20231214
  15. XARELTO [Concomitant]
     Active Substance: RIVAROXABAN
     Indication: Dyslipidaemia
     Dosage: 1 DOSAGE FORM, 2X/DAY (BID)
     Route: 048
     Dates: start: 20230914
  16. ERGOCALCIFEROL [Concomitant]
     Active Substance: ERGOCALCIFEROL
     Indication: Vitamin D deficiency
     Dosage: 1.25 MILLIGRAM, WEEKLY (QW)
     Route: 048
     Dates: start: 20120203
  17. ASPIRIN [Concomitant]
     Active Substance: ASPIRIN
     Indication: Product used for unknown indication
     Dosage: 81 MILLIGRAM
  18. XCOPRI [Concomitant]
     Active Substance: CENOBAMATE
     Indication: Seizure
     Dosage: 100 MILLIGRAM
     Dates: start: 20230622
  19. XCOPRI [Concomitant]
     Active Substance: CENOBAMATE
     Dosage: 150 MILLIGRAM
  20. XCOPRI [Concomitant]
     Active Substance: CENOBAMATE
     Dosage: 200 MILLIGRAM
  21. XCOPRI [Concomitant]
     Active Substance: CENOBAMATE
     Dosage: 150 MG- 2 TABLETS
  22. XCOPRI [Concomitant]
     Active Substance: CENOBAMATE
     Dosage: 400 MILLIGRAM
     Dates: end: 20240321
  23. PHENYTOIN SODIUM [Concomitant]
     Active Substance: PHENYTOIN SODIUM
     Indication: Product used for unknown indication
     Dosage: 100 MILLIGRAM
     Dates: start: 20221221

REACTIONS (9)
  - Seizure [Unknown]
  - Generalised tonic-clonic seizure [Unknown]
  - Simple partial seizures [Unknown]
  - Focal dyscognitive seizures [Unknown]
  - Fatigue [Unknown]
  - Drug ineffective [Unknown]
  - Treatment failure [Unknown]
  - Drug intolerance [Unknown]
  - Product use issue [Unknown]

NARRATIVE: CASE EVENT DATE: 20220101
